FAERS Safety Report 6905978-X (Version None)
Quarter: 2010Q3

REPORT INFORMATION
  Report Type: 
  Country: None (occurrence: None)
  Receive Date: 20100803
  Receipt Date: 20100803
  Transmission Date: 20110219
  Serious: Yes (Hospitalization)
  Sender: FDA-Public Use
  Company Number: None

PATIENT
  Age: 87 Year
  Sex: Male
  Weight: 55.1 kg

DRUGS (1)
  1. IBUPROFEN [Suspect]
     Indication: OSTEOARTHRITIS
     Dosage: 600 MG TID PO
     Route: 048
     Dates: start: 20091120, end: 20100326

REACTIONS (8)
  - ANAEMIA [None]
  - CONSTIPATION [None]
  - DIZZINESS [None]
  - DYSPNOEA EXERTIONAL [None]
  - FATIGUE [None]
  - IRON DEFICIENCY [None]
  - TREATMENT NONCOMPLIANCE [None]
  - UPPER GASTROINTESTINAL HAEMORRHAGE [None]
